FAERS Safety Report 22070617 (Version 4)
Quarter: 2024Q1

REPORT INFORMATION
  Report Type: Spontaneous
  Country: CA (occurrence: CA)
  Receive Date: 20230307
  Receipt Date: 20240124
  Transmission Date: 20240410
  Serious: Yes (Other)
  Sender: FDA-Public Use
  Company Number: CA-PFIZER INC-PV202300040026

PATIENT
  Age: 83 Year
  Sex: Male

DRUGS (1)
  1. LORBRENA [Suspect]
     Active Substance: LORLATINIB
     Indication: Non-small cell lung cancer
     Dosage: 100 MG
     Dates: start: 20220217

REACTIONS (5)
  - Hallucination [Unknown]
  - Pneumonia [Unknown]
  - Viral infection [Unknown]
  - Dyspepsia [Unknown]
  - Memory impairment [Unknown]

NARRATIVE: CASE EVENT DATE: 20230208
